FAERS Safety Report 13757765 (Version 2)
Quarter: 2017Q3

REPORT INFORMATION
  Report Type: Report from Study
  Country: MX (occurrence: MX)
  Receive Date: 20170717
  Receipt Date: 20170802
  Transmission Date: 20171127
  Serious: Yes (Other)
  Sender: FDA-Public Use
  Company Number: MX-UCBSA-2017027727

PATIENT
  Age: 36 Year
  Sex: Female
  Weight: 75 kg

DRUGS (4)
  1. LEVETIRACETAM. [Suspect]
     Active Substance: LEVETIRACETAM
     Indication: EPILEPSY
     Dosage: 1 G, 3X/DAY (TID)
     Route: 048
     Dates: start: 2002, end: 201704
  2. EPIVAL [Concomitant]
     Active Substance: DIVALPROEX SODIUM
     Indication: EPILEPSY
     Dosage: 500 MG/24 HRS
     Dates: start: 2002
  3. TRILEPTAL [Concomitant]
     Active Substance: OXCARBAZEPINE
     Indication: PRODUCT USED FOR UNKNOWN INDICATION
     Dosage: 500 MG/12 HRSUNK
  4. KETOROLAC [Concomitant]
     Active Substance: KETOROLAC\KETOROLAC TROMETHAMINE
     Indication: HEADACHE
     Dosage: 10 MG, 3X/DAY (TID)
     Dates: start: 2009

REACTIONS (3)
  - Premature delivery [Unknown]
  - Pregnancy [Unknown]
  - Amniotic fluid volume decreased [Unknown]

NARRATIVE: CASE EVENT DATE: 20120404
